FAERS Safety Report 4525382-1 (Version None)
Quarter: 2004Q4

REPORT INFORMATION
  Report Type: 
  Country: None (occurrence: None)
  Receive Date: 20041213
  Receipt Date: 20041207
  Transmission Date: 20050328
  Serious: Yes (Other)
  Sender: FDA-Public Use
  Company Number: US-GLAXOSMITHKLINE-A0536577A

PATIENT
  Sex: Female

DRUGS (2)
  1. ARIXTRA [Suspect]
     Indication: PROPHYLAXIS
     Dosage: 10MG PER DAY
     Route: 058
     Dates: start: 20041206
  2. NO CONCURRENT MEDICATION [Concomitant]

REACTIONS (1)
  - CANCER PAIN [None]
